FAERS Safety Report 23037402 (Version 1)
Quarter: 2023Q4

REPORT INFORMATION
  Report Type: Spontaneous
  Country: US (occurrence: None)
  Receive Date: 20231004
  Receipt Date: 20231004
  Transmission Date: 20240110
  Serious: Yes (Death)
  Sender: FDA-Public Use
  Company Number: None

PATIENT
  Sex: Male

DRUGS (17)
  1. MEKINIST [Suspect]
     Active Substance: TRAMETINIB DIMETHYL SULFOXIDE
     Dosage: 2MG ORAL?TAKE 1 TABLET BY MOUTH DAILY
     Route: 048
     Dates: start: 20221207
  2. MEKINIST [Suspect]
     Active Substance: TRAMETINIB DIMETHYL SULFOXIDE
     Dosage: FREQUENCY : DAILY;?
     Route: 048
  3. APPLE CIDER VINEGAR [Concomitant]
     Active Substance: APPLE CIDER VINEGAR
  4. ASPIRIN [Concomitant]
     Active Substance: ASPIRIN
  5. ATORVASTATIN [Concomitant]
  6. EVEROLIMUS [Concomitant]
  7. FISH OIL [Concomitant]
  8. HUMALOG [Concomitant]
     Active Substance: INSULIN LISPRO
  9. IRON [Concomitant]
  10. LEVOTHYROXIN [Concomitant]
  11. MAGNESIUM [Concomitant]
  12. MULTIVITAMIN [Concomitant]
  13. OXYCODONE [Concomitant]
  14. TACROLIMUS [Concomitant]
     Active Substance: TACROLIMUS
  15. TAFINLAR [Concomitant]
     Active Substance: DABRAFENIB MESYLATE
  16. VITAMIN D [Concomitant]
     Active Substance: VITAMIN D NOS
  17. ZORTRESS [Concomitant]
     Active Substance: EVEROLIMUS

REACTIONS (1)
  - Death [None]
